APPROVED DRUG PRODUCT: BENADRYL
Active Ingredient: DIPHENHYDRAMINE HYDROCHLORIDE
Strength: 25MG
Dosage Form/Route: CAPSULE;ORAL
Application: N005845 | Product #007
Applicant: MCNEIL CONSUMER HEALTHCARE
Approved: Approved Prior to Jan 1, 1982 | RLD: No | RS: No | Type: DISCN